FAERS Safety Report 8162941 (Version 2)
Quarter: 2013Q2

REPORT INFORMATION
  Report Type: Spontaneous
  Country: US (occurrence: None)
  Receive Date: 20110901
  Receipt Date: 20121016
  Transmission Date: 20140414
  Serious: Yes (Hospitalization)
  Sender: FDA-Public Use
  Company Number: GAM-022-11-US

PATIENT
  Age: 32 Year
  Sex: Male

DRUGS (15)
  1. OCTAGAM IMMUNE GLOBULIN (HUMAN) [Suspect]
     Indication: IMMUNODEFICIENCY COMMON VARIABLE
     Route: 042
     Dates: start: 20100708, end: 20100708
  2. DIPHENHYDRAMINE [Concomitant]
  3. PARACETAMOL [Concomitant]
  4. CHOLCHICINE [Concomitant]
  5. ACETYLSALICYLIC ACID [Concomitant]
  6. SOTALOL [Concomitant]
  7. LEVOTHYROXINE [Concomitant]
  8. SPIRONOLACTONE [Concomitant]
  9. PREDNISONE [Concomitant]
  10. FUROSEMIDE [Concomitant]
  11. ALLOPURINOL [Concomitant]
  12. CLOBETASOL [Concomitant]
  13. VITAMIN D [Concomitant]
  14. CALCIUM [Concomitant]
  15. POTASSIUM CHLORIDE [Concomitant]

REACTIONS (1)
  - CEREBROVASCULAR ACCIDENT [None]
